FAERS Safety Report 4341521-X (Version None)
Quarter: 2004Q2

REPORT INFORMATION
  Report Type: 
  Country: None (occurrence: None)
  Receive Date: 20040419
  Receipt Date: 20040413
  Transmission Date: 20050107
  Serious: Yes (Hospitalization)
  Sender: FDA-Public Use
  Company Number: 04-0022

PATIENT
  Age: 4 Year
  Sex: 0
  Weight: 15.6491 kg

DRUGS (2)
  1. VIRAVAN -DM [Suspect]
     Indication: COUGH
     Dosage: 1/2 - 3/4 TSP. Q 12 H
  2. VIRAVAN -DM [Suspect]
     Indication: RHINITIS ALLERGIC
     Dosage: 1/2 - 3/4 TSP. Q 12 H

REACTIONS (1)
  - HOSPITALISATION [None]
